FAERS Safety Report 4623811-6 (Version None)
Quarter: 2005Q1

REPORT INFORMATION
  Report Type: 
  Country: None (occurrence: None)
  Receive Date: 20050330
  Receipt Date: 20050330
  Transmission Date: 20050727
  Serious: Yes (Death)
  Sender: FDA-Public Use
  Company Number: None

PATIENT
  Age: 42 Year
  Sex: Female

DRUGS (5)
  1. NEURONTIN [Suspect]
     Indication: PAIN
     Dosage: 1600 MG, DAILY
     Dates: start: 20021221, end: 20030821
  2. SYMBYAZ [Concomitant]
  3. ZITHROMAX [Concomitant]
  4. NEXIUM [Concomitant]
  5. ALPRAZOLAM [Concomitant]

REACTIONS (2)
  - COMPLETED SUICIDE [None]
  - GUN SHOT WOUND [None]
